FAERS Safety Report 13680110 (Version 5)
Quarter: 2020Q3

REPORT INFORMATION
  Report Type: Report from Study
  Country: None (occurrence: US)
  Receive Date: 20170622
  Receipt Date: 20171010
  Transmission Date: 20201104
  Serious: Yes (Hospitalization, Other)
  Sender: FDA-Public Use
  Company Number: US-ABBVIE-17P-163-2004202-00

PATIENT
  Age: 59 Year
  Sex: Female

DRUGS (26)
  1. PHENAZOPYRIDINE. [Suspect]
     Active Substance: PHENAZOPYRIDINE
     Indication: URINARY TRACT INFECTION
     Route: 065
     Dates: start: 20170811, end: 20170811
  2. PREDNISONE. [Suspect]
     Active Substance: PREDNISONE
     Indication: PROLYMPHOCYTIC LEUKAEMIA
     Route: 048
  3. KLOR?CON [Concomitant]
     Active Substance: POTASSIUM CHLORIDE
     Indication: PRODUCT USED FOR UNKNOWN INDICATION
     Dosage: MIXED WITH WATER
     Route: 048
     Dates: start: 20170603, end: 20170623
  4. IVIG [Concomitant]
     Active Substance: HUMAN IMMUNOGLOBULIN G
     Indication: PRODUCT USED FOR UNKNOWN INDICATION
     Dosage: MOST RECENT DOSE 14 JUN 2017
     Route: 042
  5. DECADRON [Concomitant]
     Active Substance: DEXAMETHASONE
     Indication: PROPHYLAXIS
     Route: 048
  6. ALLOPURINOL. [Concomitant]
     Active Substance: ALLOPURINOL
     Indication: RENAL DISORDER
     Route: 048
     Dates: start: 20170529
  7. VENCLEXTA [Suspect]
     Active Substance: VENETOCLAX
     Indication: CHRONIC LYMPHOCYTIC LEUKAEMIA
     Route: 048
     Dates: start: 20170603, end: 20170608
  8. VENCLEXTA [Suspect]
     Active Substance: VENETOCLAX
     Route: 048
     Dates: start: 20170701
  9. ACYCLOVIR. [Concomitant]
     Active Substance: ACYCLOVIR
     Indication: PRODUCT USED FOR UNKNOWN INDICATION
     Route: 048
     Dates: start: 2010
  10. BACTRIM [Concomitant]
     Active Substance: SULFAMETHOXAZOLE\TRIMETHOPRIM
     Indication: URINARY TRACT INFECTION
     Dosage: DAILY FOR 3 DAYS
     Route: 048
  11. LORAZEPAM. [Concomitant]
     Active Substance: LORAZEPAM
     Indication: SLEEP DISORDER
     Dosage: AT BEDTIME
     Route: 048
     Dates: start: 2007
  12. VENCLEXTA [Suspect]
     Active Substance: VENETOCLAX
     Route: 048
     Dates: start: 20170609, end: 20170615
  13. VENCLEXTA [Suspect]
     Active Substance: VENETOCLAX
     Route: 048
     Dates: start: 20170616, end: 20170622
  14. DECADRON [Suspect]
     Active Substance: DEXAMETHASONE
     Indication: PROLYMPHOCYTIC LEUKAEMIA
     Route: 042
  15. BACTRIM [Concomitant]
     Active Substance: SULFAMETHOXAZOLE\TRIMETHOPRIM
     Indication: INFECTION PROPHYLAXIS
     Dosage: M/W/F
     Route: 048
  16. MAGNESIUM [Concomitant]
     Active Substance: MAGNESIUM
     Indication: CHEMOTHERAPY
     Route: 048
     Dates: start: 2013
  17. MAGNESIUM [Concomitant]
     Active Substance: MAGNESIUM
     Indication: BLOOD MAGNESIUM DECREASED
  18. IVIG [Concomitant]
     Active Substance: HUMAN IMMUNOGLOBULIN G
     Dosage: MOST RECENT DOSE 14 JUN 2017
     Route: 042
     Dates: start: 201709
  19. PREDNISONE. [Suspect]
     Active Substance: PREDNISONE
     Indication: PROPHYLAXIS
  20. DECADRON [Suspect]
     Active Substance: DEXAMETHASONE
     Indication: PROPHYLAXIS
  21. CLARITIN [Concomitant]
     Active Substance: LORATADINE
     Indication: HYPERSENSITIVITY
     Route: 048
  22. VENCLEXTA [Suspect]
     Active Substance: VENETOCLAX
     Route: 048
     Dates: start: 20170623, end: 20170628
  23. VENCLEXTA [Suspect]
     Active Substance: VENETOCLAX
     Route: 048
     Dates: start: 20170629, end: 20170630
  24. METOPROLOL. [Concomitant]
     Active Substance: METOPROLOL
     Indication: BLOOD PRESSURE MEASUREMENT
     Route: 048
     Dates: end: 20170801
  25. FLONASE SPRAY [Concomitant]
     Indication: PRODUCT USED FOR UNKNOWN INDICATION
     Dosage: 2 SQUIRTS IN EACH NOSTRIL, NASAL INHALANT
     Route: 045
  26. BENADRYL [Concomitant]
     Active Substance: DIPHENHYDRAMINE HYDROCHLORIDE
     Indication: SLEEP DISORDER
     Dosage: AT BEDTIME
     Route: 048
     Dates: start: 201701

REACTIONS (29)
  - Dehydration [Unknown]
  - Weight decreased [Unknown]
  - Blood urea abnormal [Recovered/Resolved]
  - Platelet count decreased [Unknown]
  - Nausea [Unknown]
  - Heart rate increased [Not Recovered/Not Resolved]
  - Hypoaesthesia oral [Unknown]
  - Taste disorder [Unknown]
  - Lip swelling [Recovered/Resolved]
  - Drug hypersensitivity [Unknown]
  - Diarrhoea [Unknown]
  - Tremor [Unknown]
  - Hypervigilance [Unknown]
  - Body temperature increased [Not Recovered/Not Resolved]
  - Thrombocytopenia [Unknown]
  - Blood creatinine decreased [Recovered/Resolved]
  - Decreased appetite [Recovering/Resolving]
  - Insomnia [Not Recovered/Not Resolved]
  - Weight increased [Unknown]
  - Candida infection [Unknown]
  - Blood phosphorus increased [Unknown]
  - White blood cell count decreased [Recovering/Resolving]
  - Urinary tract infection [Unknown]
  - Prolymphocytic leukaemia [Unknown]
  - Fatigue [Not Recovered/Not Resolved]
  - Blood potassium increased [Unknown]
  - Leukopenia [Unknown]
  - Blood magnesium decreased [Unknown]
  - Insomnia [Unknown]

NARRATIVE: CASE EVENT DATE: 2017
